FAERS Safety Report 25342111 (Version 1)
Quarter: 2025Q2

REPORT INFORMATION
  Report Type: Spontaneous
  Country: US (occurrence: US)
  Receive Date: 20250521
  Receipt Date: 20250521
  Transmission Date: 20250717
  Serious: Yes (Other)
  Sender: PFIZER
  Company Number: US-PFIZER INC-2019018563

PATIENT
  Age: 10 Year
  Sex: Female

DRUGS (6)
  1. XELJANZ [Suspect]
     Active Substance: TOFACITINIB CITRATE
     Indication: Colitis ulcerative
     Dosage: 10 MG TAKEN ORALLY TWICE DAILY
     Route: 048
     Dates: start: 201810
  2. XELJANZ [Suspect]
     Active Substance: TOFACITINIB CITRATE
     Dates: start: 201812
  3. XELJANZ [Suspect]
     Active Substance: TOFACITINIB CITRATE
     Dosage: 20 MG, DAILY(10MG; 2 TABLETS DAILY)
  4. XELJANZ [Suspect]
     Active Substance: TOFACITINIB CITRATE
     Dosage: 5 MG, 2X/DAY (STRENGTH: 5 MG)
     Dates: start: 20190404
  5. XELJANZ [Suspect]
     Active Substance: TOFACITINIB CITRATE
     Dosage: 5 MG TWICE A DAY
     Route: 048
     Dates: start: 202008
  6. XELJANZ [Suspect]
     Active Substance: TOFACITINIB CITRATE
     Dosage: 10 MG, 2X/DAY
     Route: 048
     Dates: start: 202011, end: 202504

REACTIONS (6)
  - Inflammatory bowel disease [Not Recovered/Not Resolved]
  - Inflammation [Unknown]
  - Respiratory syncytial virus infection [Unknown]
  - Condition aggravated [Unknown]
  - Product dose omission issue [Unknown]
  - Off label use [Unknown]

NARRATIVE: CASE EVENT DATE: 20181201
